FAERS Safety Report 25237921 (Version 1)
Quarter: 2025Q2

REPORT INFORMATION
  Report Type: Spontaneous
  Country: IT (occurrence: IT)
  Receive Date: 20250425
  Receipt Date: 20250425
  Transmission Date: 20250717
  Serious: Yes (Hospitalization)
  Sender: MSN LABORATORIES PRIVATE LIMITED
  Company Number: IT-MSNLABS-2025MSNLIT01002

PATIENT

DRUGS (2)
  1. OLMESARTAN MEDOXOMIL [Suspect]
     Active Substance: OLMESARTAN MEDOXOMIL
     Indication: Hypertension
     Route: 065
  2. MEROPENEM [Concomitant]
     Active Substance: MEROPENEM
     Indication: Diverticulitis
     Route: 065

REACTIONS (1)
  - Gastrointestinal disorder [Recovered/Resolved]
